FAERS Safety Report 8895254 (Version 1)
Quarter: 2012Q4

REPORT INFORMATION
  Report Type: 
  Country: BR (occurrence: BR)
  Receive Date: 20121107
  Receipt Date: 20121107
  Transmission Date: 20130627
  Serious: Yes (Hospitalization)
  Sender: FDA-Public Use
  Company Number: BR-PFIZER INC-2012278209

PATIENT
  Age: 82 Year
  Sex: Male
  Weight: 76 kg

DRUGS (1)
  1. EFEXOR XR [Suspect]
     Dosage: 1 capsule (75 mg), once a day
     Route: 048
     Dates: start: 2002

REACTIONS (1)
  - Head injury [Unknown]
